FAERS Safety Report 6708153-7 (Version None)
Quarter: 2010Q2

REPORT INFORMATION
  Report Type: 
  Country: None (occurrence: None)
  Receive Date: 20100503
  Receipt Date: 20090616
  Transmission Date: 20101027
  Serious: No
  Sender: FDA-Public Use
  Company Number: US-ASTRAZENECA-2006UW21633

PATIENT
  Age: 75 Year
  Sex: Female
  Weight: 53.1 kg

DRUGS (13)
  1. NEXIUM [Suspect]
     Indication: DIVERTICULITIS
     Route: 048
     Dates: start: 20061028
  2. NEXIUM [Suspect]
     Indication: GASTRITIS
     Route: 048
     Dates: start: 20061028
  3. NEXIUM [Suspect]
     Indication: HIATUS HERNIA
     Route: 048
     Dates: start: 20061028
  4. NEXIUM [Suspect]
     Indication: GASTROOESOPHAGEAL REFLUX DISEASE
     Route: 048
     Dates: start: 20061028
  5. NEXIUM [Suspect]
     Route: 048
     Dates: start: 20090613
  6. NEXIUM [Suspect]
     Route: 048
     Dates: start: 20090613
  7. NEXIUM [Suspect]
     Route: 048
     Dates: start: 20090613
  8. NEXIUM [Suspect]
     Route: 048
     Dates: start: 20090613
  9. TUMS [Suspect]
  10. VASOTEC [Concomitant]
  11. SERZONE [Concomitant]
  12. KLONOPIN [Concomitant]
  13. VITAMIN D [Concomitant]

REACTIONS (4)
  - ABDOMINAL PAIN UPPER [None]
  - DIARRHOEA [None]
  - DRUG INEFFECTIVE [None]
  - NAUSEA [None]
